FAERS Safety Report 6301539-4 (Version None)
Quarter: 2009Q3

REPORT INFORMATION
  Report Type: 
  Country: None (occurrence: None)
  Receive Date: 20090807
  Receipt Date: 20090730
  Transmission Date: 20100115
  Serious: Yes (Other)
  Sender: FDA-Public Use
  Company Number: SK-WATSON-2009-05614

PATIENT
  Age: 50 Year
  Sex: Female

DRUGS (5)
  1. PREDNISONE (WATSON LABORATORIES) [Suspect]
     Indication: SCLERITIS
     Dosage: 30 MG, DAILY
     Route: 048
     Dates: start: 20051101
  2. PREDNISONE (WATSON LABORATORIES) [Suspect]
     Dosage: 60 MG/KG, DAILY WITH TAPER
     Route: 048
  3. BETAMETHASONE SODIUM PHOSPHATE [Suspect]
     Indication: SCLERITIS
     Dosage: 0.5 ML, UNK
  4. SOLU-MEDROL [Suspect]
     Indication: SCLERITIS
     Dosage: 250 MG, UNK
  5. DIPROPHOS [Suspect]
     Indication: SCLERITIS
     Dosage: 0.5 ML, UNK

REACTIONS (1)
  - CHORIORETINOPATHY [None]
